FAERS Safety Report 18966828 (Version 1)
Quarter: 2021Q1

REPORT INFORMATION
  Report Type: Report from Study
  Country: IT (occurrence: IT)
  Receive Date: 20210303
  Receipt Date: 20210303
  Transmission Date: 20210420
  Serious: Yes (Other)
  Sender: FDA-Public Use
  Company Number: IT-JNJFOC-20210241563

PATIENT

DRUGS (10)
  1. ADALIMUMAB [Suspect]
     Active Substance: ADALIMUMAB
     Indication: CROHN^S DISEASE
     Route: 065
  2. SIMPONI [Suspect]
     Active Substance: GOLIMUMAB
     Indication: CROHN^S DISEASE
     Route: 058
  3. SIMPONI [Suspect]
     Active Substance: GOLIMUMAB
     Indication: COLITIS ULCERATIVE
  4. REMICADE [Suspect]
     Active Substance: INFLIXIMAB
     Indication: CROHN^S DISEASE
     Route: 042
  5. VEDOLIZUMAB [Suspect]
     Active Substance: VEDOLIZUMAB
     Indication: CROHN^S DISEASE
     Route: 065
  6. STELARA [Suspect]
     Active Substance: USTEKINUMAB
     Indication: COLITIS ULCERATIVE
  7. ADALIMUMAB [Suspect]
     Active Substance: ADALIMUMAB
     Indication: COLITIS ULCERATIVE
  8. STELARA [Suspect]
     Active Substance: USTEKINUMAB
     Indication: CROHN^S DISEASE
     Route: 058
  9. REMICADE [Suspect]
     Active Substance: INFLIXIMAB
     Indication: COLITIS ULCERATIVE
  10. VEDOLIZUMAB [Suspect]
     Active Substance: VEDOLIZUMAB
     Indication: COLITIS ULCERATIVE

REACTIONS (10)
  - Gastroenteritis [Unknown]
  - Varicella zoster virus infection [Unknown]
  - Genital infection [Unknown]
  - Influenza [Unknown]
  - Cholecystitis infective [Unknown]
  - Urinary tract infection [Unknown]
  - Ear infection [Unknown]
  - Skin infection [Unknown]
  - Respiratory tract infection [Unknown]
  - Herpes simplex [Unknown]
